FAERS Safety Report 23859698 (Version 2)
Quarter: 2024Q2

REPORT INFORMATION
  Report Type: Spontaneous
  Country: DE (occurrence: None)
  Receive Date: 20240515
  Receipt Date: 20240519
  Transmission Date: 20240716
  Serious: Yes (Other)
  Sender: FDA-Public Use
  Company Number: 2024A111765

PATIENT
  Sex: Female

DRUGS (11)
  1. LYNPARZA [Suspect]
     Active Substance: OLAPARIB
     Indication: Ovarian cancer stage IV
     Route: 048
     Dates: start: 201806
  2. ZOPICLOON [Concomitant]
     Dates: start: 20180713
  3. PANTOZOL [Concomitant]
     Active Substance: PANTOPRAZOLE SODIUM
     Dates: start: 20180713
  4. POLYETHYLENE GLYCOLS [Concomitant]
     Active Substance: POLYETHYLENE GLYCOLS
     Dates: start: 20191107
  5. VITAMIN B [Concomitant]
     Active Substance: VITAMIN B
     Dates: start: 20191107
  6. SELENIUM [Concomitant]
     Active Substance: SELENIUM
     Dates: start: 20191107
  7. RAMIPRIL [Concomitant]
     Active Substance: RAMIPRIL
     Dosage: 2,5MG
     Dates: start: 20200219
  8. RAMIPRIL [Concomitant]
     Active Substance: RAMIPRIL
     Dosage: 2,5MG
     Dates: start: 20201107
  9. VIGANTOL [Concomitant]
     Dosage: 1000/D
     Dates: start: 20200219
  10. CHOLECALCIFEROL [Concomitant]
     Active Substance: CHOLECALCIFEROL
     Dosage: 20 OOO/WEEK
     Dates: start: 20200507
  11. PIRETANIDE [Concomitant]
     Active Substance: PIRETANIDE
     Dosage: 1-0-0
     Dates: start: 20200916

REACTIONS (7)
  - Carbohydrate antigen 125 increased [Unknown]
  - Acquired epidermolysis bullosa [Unknown]
  - Skin cancer [Unknown]
  - COVID-19 [Unknown]
  - Osteopenia [Unknown]
  - Diarrhoea [Unknown]
  - Off label use [Unknown]
